FAERS Safety Report 9694497 (Version 1)
Quarter: 2013Q4

REPORT INFORMATION
  Report Type: Spontaneous
  Country: US (occurrence: US)
  Receive Date: 20131118
  Receipt Date: 20131118
  Transmission Date: 20140711
  Serious: No
  Sender: FDA-Public Use
  Company Number: US-SA-2013SA099904

PATIENT
  Age: 7 Year
  Sex: Female
  Weight: 20 kg

DRUGS (1)
  1. SKLICE [Suspect]
     Indication: LICE INFESTATION
     Route: 065
     Dates: start: 20130915, end: 20130924

REACTIONS (1)
  - Drug ineffective [Unknown]
